FAERS Safety Report 21978354 (Version 5)
Quarter: 2024Q3

REPORT INFORMATION
  Report Type: Spontaneous
  Country: US (occurrence: US)
  Receive Date: 20230210
  Receipt Date: 20240729
  Transmission Date: 20241017
  Serious: No
  Sender: BIOGEN
  Company Number: US-BIOGEN-2022BI01150289

PATIENT
  Age: 55 Year
  Sex: Female

DRUGS (3)
  1. VUMERITY [Suspect]
     Active Substance: DIROXIMEL FUMARATE
     Indication: Multiple sclerosis
     Route: 050
     Dates: start: 20220813
  2. VUMERITY [Suspect]
     Active Substance: DIROXIMEL FUMARATE
     Route: 050
     Dates: start: 20220831
  3. VUMERITY [Suspect]
     Active Substance: DIROXIMEL FUMARATE
     Route: 050
     Dates: start: 20220927

REACTIONS (14)
  - Therapeutic response unexpected [Unknown]
  - Product dose omission in error [Unknown]
  - Product dose omission issue [Unknown]
  - Eye paraesthesia [Unknown]
  - Vitamin B12 increased [Unknown]
  - Vitreous floaters [Unknown]
  - Gastrooesophageal reflux disease [Unknown]
  - Eye pruritus [Unknown]
  - Urticaria [Unknown]
  - Flushing [Unknown]
  - Pruritus [Unknown]
  - Abdominal pain upper [Recovered/Resolved]
  - Diarrhoea [Recovered/Resolved]
  - Hot flush [Recovered/Resolved]

NARRATIVE: CASE EVENT DATE: 20220820
